FAERS Safety Report 6138402-8 (Version None)
Quarter: 2009Q1

REPORT INFORMATION
  Report Type: 
  Country: None (occurrence: None)
  Receive Date: 20090327
  Receipt Date: 20090313
  Transmission Date: 20090719
  Serious: No
  Sender: FDA-Public Use
  Company Number: 2009001959

PATIENT
  Age: 45 Year
  Sex: Female

DRUGS (5)
  1. FENTORA [Suspect]
     Indication: BACK PAIN
     Dosage: 12000 MCG (800 MCG, 15 IN 1 D), BU
     Route: 002
  2. FENTORA [Suspect]
     Indication: SCOLIOSIS
     Dosage: 12000 MCG (800 MCG, 15 IN 1 D), BU
     Route: 002
  3. FENTORA [Suspect]
     Indication: SPINAL COLUMN STENOSIS
     Dosage: 12000 MCG (800 MCG, 15 IN 1 D), BU
     Route: 002
  4. AVINZA [Concomitant]
  5. SKELAXIN [Concomitant]

REACTIONS (7)
  - ANXIETY [None]
  - DIARRHOEA [None]
  - DRUG PRESCRIBING ERROR [None]
  - DRUG WITHDRAWAL SYNDROME [None]
  - HYPERVENTILATION [None]
  - PAIN [None]
  - TREMOR [None]
